FAERS Safety Report 5532238-4 (Version None)
Quarter: 2007Q4

REPORT INFORMATION
  Report Type: 
  Country: None (occurrence: None)
  Receive Date: 20071129
  Receipt Date: 20071129
  Transmission Date: 20080405
  Serious: Yes (Hospitalization)
  Sender: FDA-Public Use
  Company Number: None

PATIENT
  Age: 12 Year
  Sex: Male
  Weight: 34.5 kg

DRUGS (6)
  1. ABILIFY [Suspect]
     Indication: PSYCHOMOTOR HYPERACTIVITY
     Dosage: PO
     Route: 048
     Dates: start: 20070604, end: 20070606
  2. ABILIFY [Suspect]
     Indication: TREMOR
     Dosage: PO
     Route: 048
     Dates: start: 20070604, end: 20070606
  3. GUANFACINE HYDROCHLORIDE [Concomitant]
  4. CLONAZEPAM [Concomitant]
  5. SERTRALINE [Concomitant]
  6. PSEUDOEPHEDRINE HCL [Concomitant]

REACTIONS (4)
  - DIPLOPIA [None]
  - SCREAMING [None]
  - TORTICOLLIS [None]
  - TREMOR [None]
